FAERS Safety Report 5874439-1 (Version None)
Quarter: 2008Q3

REPORT INFORMATION
  Report Type: 
  Country: None (occurrence: None)
  Receive Date: 20080908
  Receipt Date: 20080827
  Transmission Date: 20090109
  Serious: Yes (Other)
  Sender: FDA-Public Use
  Company Number: CA-PFIZER INC-2008073594

PATIENT
  Age: 77 Year
  Sex: Female

DRUGS (12)
  1. CHANTIX [Suspect]
     Route: 048
     Dates: start: 20080818, end: 20080823
  2. NAPROXEN [Concomitant]
  3. ALENDRONATE SODIUM [Concomitant]
  4. ADVAIR DISKUS 100/50 [Concomitant]
  5. MULTI-VITAMINS [Concomitant]
  6. CALCIUM [Concomitant]
  7. ASCORBIC ACID [Concomitant]
  8. VITAMIN D [Concomitant]
  9. VITAMIN E [Concomitant]
  10. SUDAFED 12 HOUR [Concomitant]
  11. OXAZEPAM [Concomitant]
  12. ALL OTHER THERAPEUTIC PRODUCTS [Concomitant]

REACTIONS (1)
  - CEREBROVASCULAR ACCIDENT [None]
